FAERS Safety Report 24526608 (Version 1)
Quarter: 2024Q4

REPORT INFORMATION
  Report Type: Report from Study
  Country: AU (occurrence: AU)
  Receive Date: 20241021
  Receipt Date: 20241021
  Transmission Date: 20250114
  Serious: No
  Sender: ROCHE
  Company Number: AU-ROCHE-2887449

PATIENT
  Age: 59 Year
  Sex: Male
  Weight: 75.0 kg

DRUGS (3)
  1. VEMURAFENIB [Suspect]
     Active Substance: VEMURAFENIB
     Indication: Hairy cell leukaemia
     Dosage: EXPECTED DURATION OF TREATMENT: 6 MONTHS
     Route: 048
     Dates: start: 20210806, end: 20210824
  2. FILGRASTIM [Suspect]
     Active Substance: FILGRASTIM
     Indication: Hairy cell leukaemia
     Dosage: FREQUENCY TEXT:ALTERNATIVE DAYS
     Route: 058
     Dates: start: 201911
  3. FILGRASTIM [Suspect]
     Active Substance: FILGRASTIM
     Indication: Neutropenia

REACTIONS (3)
  - Off label use [Unknown]
  - Rash maculo-papular [Recovered/Resolved]
  - Intentional product misuse [Unknown]

NARRATIVE: CASE EVENT DATE: 20210821
